FAERS Safety Report 19552594 (Version 1)
Quarter: 2021Q3

REPORT INFORMATION
  Report Type: Spontaneous
  Country: DE (occurrence: DE)
  Receive Date: 20210715
  Receipt Date: 20210715
  Transmission Date: 20211014
  Serious: Yes (Hospitalization, Other)
  Sender: FDA-Public Use
  Company Number: DE-TEVA-2021-DE-1932239

PATIENT
  Age: 48 Year
  Sex: Female

DRUGS (2)
  1. IBUPROFEN. [Suspect]
     Active Substance: IBUPROFEN
     Dosage: IF NECESSARY
     Route: 048
  2. METAMIZOL [Suspect]
     Active Substance: METAMIZOLE SODIUM
     Dosage: 500 MG, IF NECESSARY
     Route: 048

REACTIONS (10)
  - Hyperhidrosis [Unknown]
  - Pruritus [Unknown]
  - Peripheral swelling [Unknown]
  - Feeling hot [Unknown]
  - Loss of consciousness [Unknown]
  - Dry mouth [Unknown]
  - Depressed level of consciousness [Unknown]
  - Hypersensitivity [Unknown]
  - Leukocytosis [Unknown]
  - Erythema [Unknown]
